FAERS Safety Report 5932937-6 (Version None)
Quarter: 2008Q4

REPORT INFORMATION
  Report Type: 
  Country: None (occurrence: None)
  Receive Date: 20081028
  Receipt Date: 20081020
  Transmission Date: 20090506
  Serious: Yes (Other)
  Sender: FDA-Public Use
  Company Number: JP-MERCK-0810USA04080

PATIENT
  Age: 80 Year

DRUGS (3)
  1. HYZAAR [Suspect]
     Route: 048
     Dates: start: 20080101
  2. ADALAT [Concomitant]
     Route: 048
  3. OLMETEC [Concomitant]
     Route: 048

REACTIONS (2)
  - ANOREXIA [None]
  - DEMENTIA [None]
